FAERS Safety Report 18822608 (Version 3)
Quarter: 2021Q1

REPORT INFORMATION
  Report Type: Spontaneous
  Country: FR (occurrence: FR)
  Receive Date: 20210202
  Receipt Date: 20210225
  Transmission Date: 20210419
  Serious: Yes (Hospitalization, Other)
  Sender: FDA-Public Use
  Company Number: FR-PFIZER INC-2021065881

PATIENT
  Age: 60 Year
  Sex: Female
  Weight: 90 kg

DRUGS (15)
  1. BROMAZEPAM [Suspect]
     Active Substance: BROMAZEPAM
     Indication: ANXIETY
     Dosage: 3 MG, 1X/DAY
     Route: 048
     Dates: end: 202101
  2. FLUOXETINE [Suspect]
     Active Substance: FLUOXETINE HYDROCHLORIDE
     Indication: MENTAL DISORDER
     Dosage: 30 MG, 1X/DAY
     Route: 048
     Dates: end: 202101
  3. SPECIAFOLDINE [Suspect]
     Active Substance: FOLIC ACID
     Dosage: 15 MG, 1X/DAY
     Route: 048
     Dates: end: 202101
  4. VOGALENE [Suspect]
     Active Substance: METOPIMAZINE
     Indication: NAUSEA
     Dosage: 30 MG, 1X/DAY
     Route: 048
     Dates: end: 202101
  5. ARIPIPRAZOLE. [Suspect]
     Active Substance: ARIPIPRAZOLE
     Indication: MENTAL DISORDER
     Dosage: 10 MG, 1X/DAY
     Route: 048
     Dates: end: 202101
  6. EZETIMIBE. [Suspect]
     Active Substance: EZETIMIBE
     Indication: DYSLIPIDAEMIA
     Dosage: 10 MG, 1X/DAY
     Route: 048
     Dates: end: 202101
  7. LOPERAMIDE [Suspect]
     Active Substance: LOPERAMIDE
     Indication: DIARRHOEA
     Dosage: 6 MG, 1X/DAY
     Route: 048
     Dates: end: 202101
  8. PANTOPRAZOLE [Suspect]
     Active Substance: PANTOPRAZOLE
     Dosage: 40 MG, 1X/DAY
     Route: 048
     Dates: end: 202101
  9. PREGABALIN. [Suspect]
     Active Substance: PREGABALIN
     Dosage: 450 MG, 1X/DAY
     Route: 048
     Dates: end: 202101
  10. ELIQUIS [Suspect]
     Active Substance: APIXABAN
     Indication: THROMBOSIS PROPHYLAXIS
     Dosage: 10 MG, 1X/DAY
     Route: 048
     Dates: end: 202101
  11. TIORFAN [Suspect]
     Active Substance: RACECADOTRIL
     Indication: DIARRHOEA
     Dosage: 300 MG, 1X/DAY
     Route: 048
     Dates: end: 202101
  12. ATORVASTATIN CALCIUM. [Suspect]
     Active Substance: ATORVASTATIN CALCIUM
     Indication: DYSLIPIDAEMIA
     Dosage: 20 MG, 1X/DAY
     Route: 048
     Dates: end: 202101
  13. AMIODARONE [Suspect]
     Active Substance: AMIODARONE
     Indication: ATRIAL FIBRILLATION
     Dosage: 200 MG, 1X/DAY
     Route: 048
     Dates: start: 202008, end: 202101
  14. TIORFAN [Suspect]
     Active Substance: RACECADOTRIL
     Indication: DIARRHOEA
  15. SPIRONOLACTONE. [Suspect]
     Active Substance: SPIRONOLACTONE
     Dosage: 50 MG, 1X/DAY
     Route: 048
     Dates: end: 202101

REACTIONS (1)
  - Interstitial lung disease [Recovering/Resolving]

NARRATIVE: CASE EVENT DATE: 20201231
